FAERS Safety Report 14327117 (Version 1)
Quarter: 2017Q4

REPORT INFORMATION
  Report Type: Report from Study
  Country: US (occurrence: US)
  Receive Date: 20171227
  Receipt Date: 20171227
  Transmission Date: 20180321
  Serious: Yes (Life-Threatening, Hospitalization)
  Sender: FDA-Public Use
  Company Number: PHHO2012US020301

PATIENT
  Age: 14 Year
  Sex: Male

DRUGS (3)
  1. SB497115 [Suspect]
     Active Substance: ELTROMBOPAG
     Indication: APLASTIC ANAEMIA
     Dosage: UNK
     Route: 048
     Dates: start: 20121018
  2. PREDNISONE. [Concomitant]
     Active Substance: PREDNISONE
     Indication: APLASTIC ANAEMIA
     Dosage: 40 MG, QD
     Route: 065
  3. ANTITHYMOCYTE IMMUNOGLOBULIN [Suspect]
     Active Substance: THYMOCYTE IMMUNE GLOBULIN NOS
     Indication: APLASTIC ANAEMIA
     Dosage: UNK
     Route: 042
     Dates: start: 20121005, end: 20121010

REACTIONS (6)
  - Abdominal wall haematoma [Not Recovered/Not Resolved]
  - Haematochezia [Recovered/Resolved]
  - Haematoma [Unknown]
  - Pyrexia [Unknown]
  - Infection [Recovering/Resolving]
  - Gastrointestinal haemorrhage [Recovered/Resolved]

NARRATIVE: CASE EVENT DATE: 20121006
